FAERS Safety Report 19354891 (Version 1)
Quarter: 2021Q2

REPORT INFORMATION
  Report Type: Spontaneous
  Country: US (occurrence: US)
  Receive Date: 20210601
  Receipt Date: 20210601
  Transmission Date: 20210717
  Serious: Yes (Hospitalization)
  Sender: FDA-Public Use
  Company Number: None

PATIENT
  Sex: Female

DRUGS (34)
  1. ALBUTERP; HFA [Concomitant]
  2. CLOBETASOL CRE [Concomitant]
  3. DICLOFENAC DR [Concomitant]
     Active Substance: DICLOFENAC SODIUM
  4. METOPROL SUC ER [Concomitant]
     Active Substance: METOPROLOL SUCCINATE
  5. PREDNISOLONE. [Concomitant]
     Active Substance: PREDNISOLONE
  6. UNITHROID [Concomitant]
     Active Substance: LEVOTHYROXINE SODIUM
  7. LIOTHYRONINE [Concomitant]
     Active Substance: LIOTHYRONINE
  8. MONTELUKAST [Concomitant]
     Active Substance: MONTELUKAST SODIUM
  9. OXCARBAZEPIN [Concomitant]
     Active Substance: OXCARBAZEPINE
  10. PROGESTERONE. [Concomitant]
     Active Substance: PROGESTERONE
  11. BENLYSTA [Suspect]
     Active Substance: BELIMUMAB
     Indication: SYSTEMIC LUPUS ERYTHEMATOSUS
     Route: 042
     Dates: start: 20200923
  12. CELECOXIB. [Concomitant]
     Active Substance: CELECOXIB
  13. ONDANSETRON [Concomitant]
     Active Substance: ONDANSETRON
  14. XARELTO [Concomitant]
     Active Substance: RIVAROXABAN
  15. FEROSUL [Concomitant]
     Active Substance: FERROUS SULFATE
  16. FLUCONAZOLE. [Concomitant]
     Active Substance: FLUCONAZOLE
  17. LORAZEPAM. [Concomitant]
     Active Substance: LORAZEPAM
  18. AIMOVIG [Concomitant]
     Active Substance: ERENUMAB-AOOE
  19. BENZONATATE. [Concomitant]
     Active Substance: BENZONATATE
  20. DICLOGENAC GEL [Concomitant]
  21. DOXYCYCL HYC [Concomitant]
     Active Substance: DOXYCYCLINE HYCLATE
  22. VITAMIN D [Concomitant]
     Active Substance: VITAMIN D NOS
  23. AMPHET/DEXTRA [Concomitant]
  24. BACLOFEN. [Concomitant]
     Active Substance: BACLOFEN
  25. BREO ELLIPTA [Concomitant]
     Active Substance: FLUTICASONE FUROATE\VILANTEROL TRIFENATATE
  26. DEXILANT [Concomitant]
     Active Substance: DEXLANSOPRAZOLE
  27. ENOXAPARIN [Concomitant]
     Active Substance: ENOXAPARIN
  28. LEVOTHYROXIN [Concomitant]
     Active Substance: LEVOTHYROXINE
  29. PYRIDOSTIGM [Concomitant]
  30. BUT/ASA/CAF [Concomitant]
  31. HYDROCO/APAP [Concomitant]
     Active Substance: ACETAMINOPHEN\HYDROCODONE
  32. POT CHLORIDE ER [Concomitant]
  33. SAXENDA [Concomitant]
     Active Substance: LIRAGLUTIDE
  34. SYMBICORT [Concomitant]
     Active Substance: BUDESONIDE\FORMOTEROL FUMARATE DIHYDRATE

REACTIONS (2)
  - Infection [None]
  - Therapy interrupted [None]
